FAERS Safety Report 5207633-3 (Version None)
Quarter: 2007Q1

REPORT INFORMATION
  Report Type: 
  Country: None (occurrence: None)
  Receive Date: 20070112
  Receipt Date: 20070103
  Transmission Date: 20070707
  Serious: Yes (Hospitalization, Other)
  Sender: FDA-Public Use
  Company Number: US-PFIZER INC-2006118837

PATIENT
  Sex: Female

DRUGS (1)
  1. DETROL LA [Suspect]
     Indication: NEPHROLITHIASIS
     Route: 048

REACTIONS (9)
  - CARDIAC DISORDER [None]
  - DIZZINESS [None]
  - DRUG INEFFECTIVE [None]
  - DRY MOUTH [None]
  - DYSURIA [None]
  - INCONTINENCE [None]
  - STENT PLACEMENT [None]
  - URINARY TRACT INFECTION [None]
  - WEIGHT DECREASED [None]
